FAERS Safety Report 18379041 (Version 4)
Quarter: 2021Q1

REPORT INFORMATION
  Report Type: Spontaneous
  Country: IT (occurrence: IT)
  Receive Date: 20201014
  Receipt Date: 20210111
  Transmission Date: 20210419
  Serious: Yes (Hospitalization, Other)
  Sender: FDA-Public Use
  Company Number: IT-AUROBINDO-AUR-APL-2020-052002

PATIENT
  Age: 81 Year
  Sex: Male

DRUGS (11)
  1. NOVONORM [Interacting]
     Active Substance: REPAGLINIDE
     Indication: DIABETES MELLITUS
     Dosage: 0.5 MILLIGRAM, TWO TIMES A DAY
     Route: 065
  2. SINEMET [Interacting]
     Active Substance: CARBIDOPA\LEVODOPA
     Indication: PARKINSONISM
     Dosage: 25 MILLIGRAM, ONCE A DAY
     Route: 048
  3. TRIATEC [HYDROCHLOROTHIAZIDE/RAMIPRIL] [Interacting]
     Active Substance: HYDROCHLOROTHIAZIDE\RAMIPRIL
     Indication: HYPERTENSION
     Dosage: 25 MILLIGRAM, ONCE A DAY
     Route: 065
  4. CARDICOR [Interacting]
     Active Substance: BISOPROLOL
     Indication: ATRIAL FIBRILLATION
     Dosage: 1.25 MILLIGRAM, EVERY OTHER DAY
     Route: 065
  5. EN [Interacting]
     Active Substance: DELORAZEPAM
     Indication: ANXIETY
     Dosage: 10 GTT DROPS, ONCE A DAY
     Route: 065
  6. RISPERIDONE. [Suspect]
     Active Substance: RISPERIDONE
     Indication: PSYCHOTIC DISORDER
     Dosage: 1 MILLIGRAM, ONCE A DAY (BEDTIME)
     Route: 065
  7. ELIQUIS [Interacting]
     Active Substance: APIXABAN
     Indication: ATRIAL FIBRILLATION
     Dosage: 5 MILLIGRAM, EVERY OTHER DAY
     Route: 065
  8. PANTOPAN [Interacting]
     Active Substance: PANTOPRAZOLE SODIUM
     Indication: PROPHYLAXIS
     Dosage: 20 MILLIGRAM
     Route: 065
  9. SPIRIVA [Interacting]
     Active Substance: TIOTROPIUM BROMIDE MONOHYDRATE
     Indication: CHRONIC OBSTRUCTIVE PULMONARY DISEASE
     Dosage: 18 MICROGRAM, ONCE A DAY
     Route: 065
  10. LARGACTIL [Interacting]
     Active Substance: CHLORPROMAZINE
     Indication: PSYCHOTIC DISORDER
     Dosage: 25 MILLIGRAM, ONCE A DAY
     Route: 065
  11. TORVAST [Interacting]
     Active Substance: ATORVASTATIN
     Indication: HYPERCHOLESTEROLAEMIA
     Dosage: 20 MILLIGRAM, ONCE A DAY
     Route: 065

REACTIONS (10)
  - Drug interaction [Unknown]
  - Hypertonia [Recovering/Resolving]
  - Cerebral atrophy [Unknown]
  - Product prescribing issue [Unknown]
  - Dementia [Recovering/Resolving]
  - Cardiac murmur [Unknown]
  - Depressed mood [Recovering/Resolving]
  - Off label use [Unknown]
  - Labelled drug-drug interaction medication error [Unknown]
  - Cognitive disorder [Recovering/Resolving]
